FAERS Safety Report 8741913 (Version 3)
Quarter: 2013Q4

REPORT INFORMATION
  Report Type: Spontaneous
  Country: US (occurrence: US)
  Receive Date: 20120824
  Receipt Date: 20131101
  Transmission Date: 20140711
  Serious: No
  Sender: FDA-Public Use
  Company Number: US-009507513-1207USA013115

PATIENT
  Age: 20 Year
  Sex: Female
  Weight: 57.14 kg

DRUGS (1)
  1. IMPLANON [Suspect]
     Indication: CONTRACEPTION
     Dosage: 1 DF, UNK
     Route: 059
     Dates: start: 20090609

REACTIONS (4)
  - Incorrect drug administration duration [Unknown]
  - Device difficult to use [Unknown]
  - Medical device complication [Unknown]
  - No adverse event [Unknown]
